FAERS Safety Report 8403941 (Version 2)
Quarter: 2012Q4

REPORT INFORMATION
  Report Type: 
  Country: BE (occurrence: BE)
  Receive Date: 20120214
  Receipt Date: 20121211
  Transmission Date: 20130627
  Serious: Yes (Death, Hospitalization, Other)
  Sender: FDA-Public Use
  Company Number: BE-RANBAXY-2012RR-52575

PATIENT
  Age: 34 Year
  Sex: Female
  Weight: 65 kg

DRUGS (3)
  1. VENLAFAXINE [Suspect]
     Dosage: up to 7.5 g, extended-release
     Route: 048
  2. VENLAFAXINE [Suspect]
     Dosage: up to 3.75 g, immediate release
     Route: 048
  3. PARACETAMOL [Suspect]
     Dosage: a maximal dose of 20 g
     Route: 048

REACTIONS (9)
  - Overdose [Recovered/Resolved]
  - Convulsion [Recovered/Resolved]
  - Cardiomyopathy [Recovered/Resolved]
  - Rhabdomyolysis [Recovered/Resolved]
  - Serotonin syndrome [Recovered/Resolved]
  - Renal failure acute [Recovered/Resolved]
  - Suicide attempt [Recovered/Resolved]
  - Intentional overdose [None]
  - Pneumonia [None]
